FAERS Safety Report 25896248 (Version 2)
Quarter: 2025Q4

REPORT INFORMATION
  Report Type: Spontaneous
  Country: US (occurrence: US)
  Receive Date: 20251008
  Receipt Date: 20251126
  Transmission Date: 20260117
  Serious: No
  Sender: VERTEX
  Company Number: US-VERTEX PHARMACEUTICALS-2025-016231

PATIENT

DRUGS (1)
  1. SUZETRIGINE [Suspect]
     Active Substance: SUZETRIGINE
     Indication: Product used for unknown indication
     Dosage: UNK

REACTIONS (3)
  - Diarrhoea [Unknown]
  - Feeling abnormal [Unknown]
  - Drug ineffective [Unknown]
